FAERS Safety Report 7335372-1 (Version None)
Quarter: 2011Q1

REPORT INFORMATION
  Report Type: 
  Country: None (occurrence: None)
  Receive Date: 20110302
  Receipt Date: 20110302
  Transmission Date: 20110831
  Serious: Yes (Life-Threatening, Other)
  Sender: FDA-Public Use
  Company Number: None

PATIENT
  Age: 57 Year
  Sex: Male
  Weight: 99.3377 kg

DRUGS (2)
  1. PROAIR HFA [Suspect]
     Indication: PROPHYLAXIS
     Dosage: 90 MCG 4 PUFFS DAILY
     Dates: start: 20110208, end: 20110222
  2. PROAIR HFA [Suspect]
     Indication: ASTHMA
     Dosage: 90 MCG 4 PUFFS DAILY
     Dates: start: 20110208, end: 20110222

REACTIONS (4)
  - DIARRHOEA [None]
  - BRONCHOSPASM [None]
  - RASH [None]
  - URTICARIA [None]
